FAERS Safety Report 17635764 (Version 1)
Quarter: 2020Q2

REPORT INFORMATION
  Report Type: Report from Study
  Country: CA (occurrence: CA)
  Receive Date: 20200407
  Receipt Date: 20200407
  Transmission Date: 20200713
  Serious: Yes (Hospitalization)
  Sender: FDA-Public Use
  Company Number: CA-BIOGEN-2020BI00858043

PATIENT
  Sex: Female

DRUGS (5)
  1. SPINRAZA [Suspect]
     Active Substance: NUSINERSEN
     Dosage: THIRD?12 MG DAYS 0, 14, 28, 58, THEN EVERY 4 MONTHS THEREAFTER
     Route: 037
     Dates: start: 20200114
  2. SPINRAZA [Suspect]
     Active Substance: NUSINERSEN
     Dosage: 12 MG DAYS 0, 14, 28, 58, THEN EVERY 4 MONTHS THEREAFTER
     Route: 037
  3. SPINRAZA [Suspect]
     Active Substance: NUSINERSEN
     Indication: SPINAL MUSCULAR ATROPHY
     Dosage: INITIAL?12 MG DAYS 0, 14, 28, 58, THEN EVERY 4 MONTHS THEREAFTER
     Route: 037
     Dates: start: 20191015
  4. SPINRAZA [Suspect]
     Active Substance: NUSINERSEN
     Dosage: SECOND?12 MG DAYS 0, 14, 28, 58, THEN EVERY 4 MONTHS THEREAFTER
     Route: 037
  5. SPINRAZA [Suspect]
     Active Substance: NUSINERSEN
     Dosage: FOURTH?12 MG DAYS 0, 14, 28, 58, THEN EVERY 4 MONTHS THEREAFTER
     Route: 037
     Dates: start: 20200324

REACTIONS (1)
  - Respiratory tract infection [Recovered/Resolved]
